FAERS Safety Report 5240123-0 (Version None)
Quarter: 2007Q1

REPORT INFORMATION
  Report Type: 
  Country: None (occurrence: None)
  Receive Date: 20070216
  Receipt Date: 20070205
  Transmission Date: 20070707
  Serious: Yes (Other)
  Sender: FDA-Public Use
  Company Number: US-PFIZER INC-2007010918

PATIENT
  Sex: Female
  Weight: 121.1 kg

DRUGS (2)
  1. DOSTINEX [Suspect]
     Indication: PITUITARY TUMOUR
  2. SYNTHROID [Suspect]
     Indication: HYPOTHYROIDISM

REACTIONS (3)
  - CARDIAC DISORDER [None]
  - FEELING ABNORMAL [None]
  - PITUITARY TUMOUR RECURRENT [None]
